FAERS Safety Report 23718571 (Version 1)
Quarter: 2024Q2

REPORT INFORMATION
  Report Type: Spontaneous
  Country: CA (occurrence: CA)
  Receive Date: 20240408
  Receipt Date: 20240408
  Transmission Date: 20240716
  Serious: Yes (Other)
  Sender: FDA-Public Use
  Company Number: CA-SUN PHARMACEUTICAL INDUSTRIES LTD-2024R1-439938

PATIENT
  Age: 5 Decade
  Sex: Female

DRUGS (2)
  1. DIMENHYDRINATE [Suspect]
     Active Substance: DIMENHYDRINATE
     Indication: Delusional disorder, unspecified type
     Dosage: 750 MILLIGRAM, DAILY
     Route: 065
  2. acetaminophen; methocarbamol [Concomitant]
     Indication: Delusional disorder, mixed type
     Dosage: UNK
     Route: 065

REACTIONS (1)
  - Cognitive disorder [Unknown]
